FAERS Safety Report 5328262-7 (Version None)
Quarter: 2007Q2

REPORT INFORMATION
  Report Type: 
  Country: None (occurrence: None)
  Receive Date: 20070516
  Receipt Date: 20070516
  Transmission Date: 20071010
  Serious: Yes (Hospitalization)
  Sender: FDA-Public Use
  Company Number: None

PATIENT
  Sex: Female
  Weight: 69.9 kg

DRUGS (2)
  1. GAMUNEX [Suspect]
     Indication: POLYNEUROPATHY
     Dosage: 30 GM DAILY IV
     Route: 042
     Dates: start: 20070412, end: 20070416
  2. GAMUNEX [Suspect]
     Indication: POLYNEUROPATHY
     Dosage: 30 GM DAILY IV
     Route: 042
     Dates: start: 20070412, end: 20070416

REACTIONS (2)
  - HAEMATOCRIT DECREASED [None]
  - HAEMOGLOBIN DECREASED [None]
